FAERS Safety Report 7352370-2 (Version None)
Quarter: 2011Q1

REPORT INFORMATION
  Report Type: 
  Country: None (occurrence: None)
  Receive Date: 20110309
  Receipt Date: 20110309
  Transmission Date: 20110831
  Serious: Yes (Hospitalization)
  Sender: FDA-Public Use
  Company Number: None

PATIENT
  Sex: Male
  Weight: 87 kg

DRUGS (4)
  1. GEMCITABINE HYDROCHLORIDE [Suspect]
     Dosage: 6670 MG
  2. TARCEVA [Suspect]
     Dosage: 3000 MG
  3. ASPIRIN [Concomitant]
  4. NEXIUM [Concomitant]

REACTIONS (5)
  - ASCITES [None]
  - ABDOMINAL COMPARTMENT SYNDROME [None]
  - NAUSEA [None]
  - HYPOTENSION [None]
  - MALAISE [None]
